FAERS Safety Report 6918574-5 (Version None)
Quarter: 2010Q3

REPORT INFORMATION
  Report Type: 
  Country: None (occurrence: None)
  Receive Date: 20100811
  Receipt Date: 20100802
  Transmission Date: 20110219
  Serious: Yes (Hospitalization)
  Sender: FDA-Public Use
  Company Number: FR-ASTRAZENECA-2010SE36682

PATIENT
  Age: 70 Year
  Sex: Female

DRUGS (6)
  1. ATACAND [Suspect]
     Route: 048
     Dates: start: 20100623
  2. ATACAND [Suspect]
     Route: 048
     Dates: start: 20100624
  3. DIPIPERON [Suspect]
     Route: 048
     Dates: start: 20100628, end: 20100629
  4. DEPAMIDE [Suspect]
     Route: 048
     Dates: start: 20100628, end: 20100629
  5. MEPRONIZINE [Concomitant]
     Dates: end: 20100629
  6. SERESTA [Concomitant]
     Dates: end: 20100629

REACTIONS (3)
  - FALL [None]
  - FEMUR FRACTURE [None]
  - HYPOTENSION [None]
